FAERS Safety Report 11709617 (Version 1)
Quarter: 2015Q4

REPORT INFORMATION
  Report Type: Spontaneous
  Country: US (occurrence: US)
  Receive Date: 20151104
  Receipt Date: 20151104
  Transmission Date: 20160304
  Serious: No
  Sender: FDA-Public Use
  Company Number: US-ELI_LILLY_AND_COMPANY-US201103007193

PATIENT
  Sex: Female

DRUGS (1)
  1. FORTEO [Suspect]
     Active Substance: TERIPARATIDE
     Dosage: 20 UG, QD
     Dates: start: 200912, end: 201101

REACTIONS (5)
  - Injection site erythema [Unknown]
  - Injection site hypersensitivity [Unknown]
  - Injection site mass [Unknown]
  - Intentional product misuse [Unknown]
  - Injection site pain [Unknown]
